FAERS Safety Report 6243969-5 (Version None)
Quarter: 2009Q2

REPORT INFORMATION
  Report Type: 
  Country: None (occurrence: None)
  Receive Date: 20090623
  Receipt Date: 20090615
  Transmission Date: 20091009
  Serious: Yes (Other)
  Sender: FDA-Public Use
  Company Number: 2008SP012770

PATIENT
  Age: 54 Year
  Sex: Male

DRUGS (4)
  1. PEG-INTRON [Suspect]
     Indication: HEPATITIS C
     Dosage: SC; SC
     Route: 058
     Dates: start: 20080619
  2. PEG-INTRON [Suspect]
     Indication: HEPATITIS C
     Dosage: SC; SC
     Route: 058
     Dates: start: 20081204
  3. RIBAVIRIN [Suspect]
     Indication: HEPATITIS C
     Dosage: 5000 MG; QD; PO
     Route: 048
     Dates: start: 20080619
  4. RIBAVIRIN [Suspect]
     Indication: HEPATITIS C
     Dosage: 5000 MG; QD; PO
     Route: 048
     Dates: start: 20081204

REACTIONS (11)
  - ASTHENIA [None]
  - BLOOD COUNT ABNORMAL [None]
  - CONDITION AGGRAVATED [None]
  - DRUG DISPENSING ERROR [None]
  - EYE MOVEMENT DISORDER [None]
  - MEMORY IMPAIRMENT [None]
  - MIGRAINE [None]
  - OVERDOSE [None]
  - PAIN [None]
  - PRODUCT QUALITY ISSUE [None]
  - VOMITING [None]
